FAERS Safety Report 5287059-7 (Version None)
Quarter: 2007Q2

REPORT INFORMATION
  Report Type: 
  Country: None (occurrence: None)
  Receive Date: 20070404
  Receipt Date: 20070323
  Transmission Date: 20071010
  Serious: Yes (Hospitalization, Disabling)
  Sender: FDA-Public Use
  Company Number: BR-PFIZER INC-2005043919

PATIENT
  Sex: Female

DRUGS (3)
  1. DEPO-PROVERA [Suspect]
     Indication: ENDOMETRIOSIS
     Dates: start: 20030101, end: 20030101
  2. LISTERINE (BRAZ) [Suspect]
     Indication: DENTAL DISORDER PROPHYLAXIS
     Dosage: TEXT:HALF CAP; 1CAP + HAL-FREQ:TID
     Route: 050
  3. FENERGAN [Concomitant]
     Indication: BRONCHITIS
     Route: 048

REACTIONS (5)
  - CENTRAL NERVOUS SYSTEM INFECTION [None]
  - MALAISE [None]
  - MEDICATION ERROR [None]
  - PARALYSIS [None]
  - VISUAL DISTURBANCE [None]
